FAERS Safety Report 7277759-1 (Version None)
Quarter: 2011Q1

REPORT INFORMATION
  Report Type: 
  Country: None (occurrence: None)
  Receive Date: 20110207
  Receipt Date: 20100121
  Transmission Date: 20110831
  Serious: No
  Sender: FDA-Public Use
  Company Number: A0840785A

PATIENT
  Sex: Female

DRUGS (8)
  1. OLUX E [Suspect]
     Indication: PSORIASIS
     Dates: start: 20090119
  2. AMITRIPTYLINE HCL [Concomitant]
  3. LEVOXYL [Concomitant]
  4. FLUOXETINE [Concomitant]
  5. LISTERINE [Suspect]
  6. HUMALOG [Concomitant]
  7. BENICAR [Concomitant]
  8. LANTUS [Concomitant]

REACTIONS (3)
  - ACCIDENTAL EXPOSURE [None]
  - ORAL DISCOMFORT [None]
  - PARAESTHESIA ORAL [None]
